FAERS Safety Report 10231985 (Version 1)
Quarter: 2014Q2

REPORT INFORMATION
  Report Type: Spontaneous
  Country: FI (occurrence: FI)
  Receive Date: 20140612
  Receipt Date: 20140612
  Transmission Date: 20141212
  Serious: Yes (Hospitalization)
  Sender: FDA-Public Use
  Company Number: FI-ROCHE-1414064

PATIENT
  Age: 77 Year
  Sex: Female

DRUGS (4)
  1. MABTHERA [Suspect]
     Indication: RHEUMATOID ARTHRITIS
     Route: 042
     Dates: start: 201309
  2. MABTHERA [Suspect]
     Route: 042
     Dates: start: 20140422
  3. MABTHERA [Suspect]
     Route: 042
     Dates: start: 20140508
  4. PROLIA [Concomitant]
     Route: 065
     Dates: start: 20140513

REACTIONS (5)
  - Malaise [Unknown]
  - Pyrexia [Unknown]
  - C-reactive protein increased [Unknown]
  - Stridor [Unknown]
  - Lung disorder [Unknown]
